FAERS Safety Report 26003576 (Version 1)
Quarter: 2025Q4

REPORT INFORMATION
  Report Type: Spontaneous
  Country: EU (occurrence: EU)
  Receive Date: 20251106
  Receipt Date: 20251106
  Transmission Date: 20260118
  Serious: Yes (Hospitalization, Other)
  Sender: AMGEN
  Company Number: EU-AMGEN-ITASP2025215708

PATIENT
  Age: 41 Year
  Sex: Male

DRUGS (5)
  1. ETANERCEPT [Suspect]
     Active Substance: ETANERCEPT
     Indication: Spondylitis
     Dosage: UNK
     Route: 065
  2. ETANERCEPT [Suspect]
     Active Substance: ETANERCEPT
     Indication: Off label use
  3. METHOTREXATE [Concomitant]
     Active Substance: METHOTREXATE
     Indication: Spondylitis
     Dosage: UNK
     Route: 065
  4. PREDNISONE [Concomitant]
     Active Substance: PREDNISONE
     Indication: Spondylitis
     Dosage: UNK
     Route: 065
  5. CELECOXIB [Concomitant]
     Active Substance: CELECOXIB
     Indication: Spondylitis
     Dosage: UNK
     Route: 065

REACTIONS (10)
  - Stiff person syndrome [Not Recovered/Not Resolved]
  - Confusional state [Not Recovered/Not Resolved]
  - Disorientation [Not Recovered/Not Resolved]
  - Hyperinsulinaemic hypoglycaemia [Unknown]
  - Pancreatic neuroendocrine tumour [Unknown]
  - Stress [Unknown]
  - Off label use [Unknown]
  - Somnolence [Unknown]
  - Fatigue [Unknown]
  - Drug ineffective for unapproved indication [Unknown]

NARRATIVE: CASE EVENT DATE: 20230101
